FAERS Safety Report 12618674 (Version 1)
Quarter: 2016Q3

REPORT INFORMATION
  Report Type: Spontaneous
  Country: SE (occurrence: SE)
  Receive Date: 20160803
  Receipt Date: 20160803
  Transmission Date: 20161109
  Serious: Yes (Other)
  Sender: FDA-Public Use
  Company Number: SE-ASTELLAS-2016US021603

PATIENT
  Age: 83 Year
  Sex: Female

DRUGS (6)
  1. BETMIGA [Suspect]
     Active Substance: MIRABEGRON
     Indication: MICTURITION URGENCY
  2. LOSARTAN. [Concomitant]
     Active Substance: LOSARTAN
     Indication: PRODUCT USED FOR UNKNOWN INDICATION
     Route: 065
  3. BETMIGA [Suspect]
     Active Substance: MIRABEGRON
     Indication: DYSURIA
  4. ZOLPIDEM [Concomitant]
     Active Substance: ZOLPIDEM\ZOLPIDEM TARTRATE
     Indication: PRODUCT USED FOR UNKNOWN INDICATION
     Dosage: 5 MG, FOR THE NIGHT AS NEEDED
     Route: 065
  5. BETMIGA [Suspect]
     Active Substance: MIRABEGRON
     Indication: DYSURIA
     Route: 048
     Dates: start: 2016, end: 20160509
  6. ALVEDON [Concomitant]
     Active Substance: ACETAMINOPHEN
     Indication: PRODUCT USED FOR UNKNOWN INDICATION
     Dosage: 2 DF, 3-4 TIMES PER DAY AS NEEDED
     Route: 065

REACTIONS (6)
  - Gastritis [Recovered/Resolved]
  - Joint stiffness [Recovered/Resolved]
  - Off label use [Unknown]
  - Poor quality sleep [Recovered/Resolved]
  - Joint swelling [Recovered/Resolved]
  - Arthralgia [Recovered/Resolved]
